FAERS Safety Report 4660356-1 (Version None)
Quarter: 2005Q2

REPORT INFORMATION
  Report Type: 
  Country: None (occurrence: None)
  Receive Date: 20050427
  Receipt Date: 20050325
  Transmission Date: 20051028
  Serious: No
  Sender: FDA-Public Use
  Company Number: 213424

PATIENT
  Age: 53 Year
  Sex: Female

DRUGS (1)
  1. XOLAIR [Suspect]
     Indication: ASTHMA
     Dosage: QW
     Dates: start: 20040801

REACTIONS (4)
  - INJECTION SITE PAIN [None]
  - MEDICATION ERROR [None]
  - MUSCLE SPASMS [None]
  - UNEVALUABLE EVENT [None]
